FAERS Safety Report 16366192 (Version 2)
Quarter: 2019Q2

REPORT INFORMATION
  Report Type: Report from Study
  Country: DE (occurrence: DE)
  Receive Date: 20190529
  Receipt Date: 20190530
  Transmission Date: 20190711
  Serious: No
  Sender: FDA-Public Use
  Company Number: DE-ROCHE-2326497

PATIENT
  Age: 48 Year
  Sex: Female
  Weight: 97 kg

DRUGS (17)
  1. PARACETAMOL [Concomitant]
     Active Substance: ACETAMINOPHEN
     Dosage: ONLY ON THE DAY OF THE INFUSION
     Route: 051
     Dates: start: 20181109
  2. PANTOZOL [Concomitant]
     Active Substance: PANTOPRAZOLE SODIUM
     Indication: GASTROINTESTINAL DISORDER PROPHYLAXIS
     Dosage: ONLY ON THE DAY OF THE INFUSION
     Route: 048
     Dates: start: 20181109
  3. OCRELIZUMAB. [Suspect]
     Active Substance: OCRELIZUMAB
     Indication: PROGRESSIVE RELAPSING MULTIPLE SCLEROSIS
     Route: 042
     Dates: start: 20180419, end: 20180504
  4. PARACETAMOL [Concomitant]
     Active Substance: ACETAMINOPHEN
     Indication: PREMEDICATION
     Dosage: ONLY ON THE DAY OF THE INFUSION
     Route: 051
     Dates: start: 20180419, end: 20180504
  5. ALPHA LIPOIC ACID [Concomitant]
     Active Substance: .ALPHA.-LIPOIC ACID
     Route: 048
     Dates: start: 20180301
  6. OCRELIZUMAB. [Suspect]
     Active Substance: OCRELIZUMAB
     Indication: PRIMARY PROGRESSIVE MULTIPLE SCLEROSIS
  7. PREDNISOLUT [PREDNISOLONE HEMISUCCINATE] [Concomitant]
     Indication: PREMEDICATION
     Dosage: ONLY ON THE DAY OF THE INFUSION
     Route: 042
     Dates: start: 20180419, end: 20180504
  8. PREDNISOLUT [PREDNISOLONE HEMISUCCINATE] [Concomitant]
     Dosage: ONLY ON THE DAY OF THE INFUSION
     Route: 042
     Dates: start: 20181109
  9. FENISTIL [Concomitant]
     Active Substance: DIMETHINDENE
     Dosage: ONLY ON THE DAY OF THE INFUSION
     Route: 042
     Dates: start: 20181109
  10. SATIVEX [Concomitant]
     Active Substance: NABIXIMOLS
     Indication: MUSCLE SPASTICITY
     Route: 002
     Dates: start: 20180201
  11. FENISTIL [Concomitant]
     Active Substance: DIMETHINDENE
     Indication: PREMEDICATION
     Dosage: ONLY ON THE DAY OF THE INFUSION
     Route: 042
     Dates: start: 20180419, end: 20180504
  12. PROPIONIC ACID [Concomitant]
     Active Substance: PROPIONIC ACID
     Route: 048
     Dates: start: 20180301
  13. PANTOZOL [Concomitant]
     Active Substance: PANTOPRAZOLE SODIUM
     Route: 048
     Dates: start: 20180921, end: 20180930
  14. URBASON [METHYLPREDNISOLONE] [Concomitant]
     Active Substance: METHYLPREDNISOLONE
     Indication: MULTIPLE SCLEROSIS
     Route: 042
     Dates: start: 20180921, end: 20180925
  15. RAMIPRIL. [Concomitant]
     Active Substance: RAMIPRIL
     Indication: HYPERTENSION
     Dosage: PAUSED SINCE OCT-2018
     Route: 048
     Dates: start: 20170901, end: 201810
  16. CLEXANE [Concomitant]
     Active Substance: ENOXAPARIN SODIUM
     Indication: THROMBOSIS PROPHYLAXIS
     Route: 058
     Dates: start: 20180921, end: 20180925
  17. URBASON [METHYLPREDNISOLONE] [Concomitant]
     Active Substance: METHYLPREDNISOLONE
     Dosage: DAILY TAPPERING OF AFTER INTRAVENOUS THERAPY ACCORDING TO PLAN: 100/50/25/10/5 MG
     Route: 048
     Dates: start: 20180926, end: 20180930

REACTIONS (1)
  - Nasopharyngitis [Recovered/Resolved]

NARRATIVE: CASE EVENT DATE: 20190110
